FAERS Safety Report 15844287 (Version 1)
Quarter: 2019Q1

REPORT INFORMATION
  Report Type: Spontaneous
  Country: US (occurrence: US)
  Receive Date: 20190118
  Receipt Date: 20190118
  Transmission Date: 20190417
  Serious: No
  Sender: FDA-Public Use
  Company Number: US-SA-2018SA256632

PATIENT
  Age: 74 Year
  Sex: Female
  Weight: 44.4 kg

DRUGS (1)
  1. CAPZASIN HP ARTHRITIS PAIN RELIEF [Suspect]
     Active Substance: CAPSAICIN
     Indication: HERPES ZOSTER
     Dosage: 1 SIDE APPLY TO BACK SIDE STOMACH
     Route: 061
     Dates: start: 201809

REACTIONS (4)
  - Application site pain [Unknown]
  - Skin irritation [Unknown]
  - Application site erythema [Unknown]
  - Off label use [Unknown]
